FAERS Safety Report 5782314-6 (Version None)
Quarter: 2008Q2

REPORT INFORMATION
  Report Type: 
  Country: None (occurrence: None)
  Receive Date: 20080623
  Receipt Date: 20080617
  Transmission Date: 20081010
  Serious: Yes (Disabling)
  Sender: FDA-Public Use
  Company Number: DE-BOEHRINGER INGELHEIM GMBH, GERMANY-2008-DE-03213DE

PATIENT
  Sex: Male

DRUGS (5)
  1. ALNA OCAS [Suspect]
     Indication: DYSURIA
     Route: 048
     Dates: start: 20080401, end: 20080601
  2. ALNA OCAS [Suspect]
     Indication: POLLAKIURIA
  3. OMEPRAZOLE [Concomitant]
     Indication: GASTROOESOPHAGEAL REFLUX DISEASE
     Route: 048
  4. CARMEN [Concomitant]
     Indication: HYPERTENSION
     Route: 048
  5. VOTUM [Concomitant]
     Indication: HYPERTENSION
     Route: 048

REACTIONS (1)
  - PEYRONIE'S DISEASE [None]
